FAERS Safety Report 6427513-5 (Version None)
Quarter: 2009Q4

REPORT INFORMATION
  Report Type: 
  Country: None (occurrence: None)
  Receive Date: 20091104
  Receipt Date: 20091027
  Transmission Date: 20100525
  Serious: Yes (Hospitalization)
  Sender: FDA-Public Use
  Company Number: PHHO2009RU13089

PATIENT
  Sex: Female
  Weight: 65.3 kg

DRUGS (2)
  1. RAD 666 RAD+TAB [Suspect]
     Indication: LIVER TRANSPLANT
     Dosage: UNK
     Dates: start: 20090225
  2. TACROLIMUS COMP-TAC+ [Suspect]
     Indication: LIVER TRANSPLANT

REACTIONS (3)
  - DRUG INEFFECTIVE [None]
  - GRAFT DYSFUNCTION [None]
  - TRANSPLANT REJECTION [None]
